FAERS Safety Report 8133365-8 (Version None)
Quarter: 2012Q1

REPORT INFORMATION
  Report Type: 
  Country: None (occurrence: None)
  Receive Date: 20120213
  Receipt Date: 20120207
  Transmission Date: 20120608
  Serious: Yes (Hospitalization, Other)
  Sender: FDA-Public Use
  Company Number: US-BAYER-2012-012624

PATIENT
  Weight: 1.525 kg

DRUGS (1)
  1. MIRENA [Suspect]
     Dosage: 20 ?G/D, CONT
     Route: 064
     Dates: start: 20110101

REACTIONS (2)
  - PREMATURE BABY [None]
  - LOW BIRTH WEIGHT BABY [None]
